FAERS Safety Report 8362902-3 (Version None)
Quarter: 2012Q2

REPORT INFORMATION
  Report Type: 
  Country: None (occurrence: None)
  Receive Date: 20120514
  Receipt Date: 20120514
  Transmission Date: 20120825
  Serious: Yes (Other)
  Sender: FDA-Public Use
  Company Number: None

PATIENT
  Age: 52 Year
  Sex: Male

DRUGS (3)
  1. RIBASPHERE [Suspect]
     Dosage: 400MG TWICE DAILY PO
     Route: 048
  2. PEGASYS [Concomitant]
  3. VICTRELIS [Suspect]
     Dosage: 800MG THREE TIMES DAILY PO
     Route: 048

REACTIONS (2)
  - CRYING [None]
  - NERVOUS SYSTEM DISORDER [None]
